FAERS Safety Report 22076739 (Version 1)
Quarter: 2023Q1

REPORT INFORMATION
  Report Type: Spontaneous
  Country: NZ (occurrence: NZ)
  Receive Date: 20230309
  Receipt Date: 20230309
  Transmission Date: 20230417
  Serious: Yes (Life-Threatening, Hospitalization)
  Sender: FDA-Public Use
  Company Number: NZ-CHIESI-2023CHF01236

PATIENT
  Age: 33 Year
  Sex: Male

DRUGS (13)
  1. DEFERIPRONE [Suspect]
     Active Substance: DEFERIPRONE
     Indication: Haemosiderosis
     Dosage: UNK
  2. DEFERIPRONE [Suspect]
     Active Substance: DEFERIPRONE
     Indication: Congenital aplastic anaemia
  3. DEFERIPRONE [Suspect]
     Active Substance: DEFERIPRONE
     Indication: Off label use
  4. DANAZOL [Concomitant]
     Active Substance: DANAZOL
     Indication: Product used for unknown indication
     Dosage: 200 MILLIGRAM, QD
     Dates: start: 201803
  5. PREDNISONE [Concomitant]
     Active Substance: PREDNISONE
     Indication: Product used for unknown indication
     Dosage: 110 MILLIGRAM
     Dates: start: 201711
  6. PREDNISONE [Concomitant]
     Active Substance: PREDNISONE
     Dosage: 8 MILLIGRAM
     Dates: start: 201711
  7. PREDNISONE [Concomitant]
     Active Substance: PREDNISONE
     Dosage: 110 MILLIGRAM
     Dates: start: 201812
  8. PREDNISONE [Concomitant]
     Active Substance: PREDNISONE
     Dosage: 60 MILLIGRAM
     Dates: start: 201802
  9. PREDNISONE [Concomitant]
     Active Substance: PREDNISONE
     Dosage: 30 MILLIGRAM
     Dates: start: 201804
  10. PREDNISONE [Concomitant]
     Active Substance: PREDNISONE
     Dosage: 7.5 MILLIGRAM
     Dates: start: 201806
  11. PREDNISONE [Concomitant]
     Active Substance: PREDNISONE
     Dosage: 7.5 MILLIGRAM
     Dates: start: 201808
  12. PREDNISONE [Concomitant]
     Active Substance: PREDNISONE
     Dosage: 7.5 MILLIGRAM
     Dates: start: 201810
  13. PREDNISONE [Concomitant]
     Active Substance: PREDNISONE
     Dosage: 7.5 MILLIGRAM
     Dates: start: 201812

REACTIONS (4)
  - Neutropenic sepsis [Unknown]
  - Cellulitis [Unknown]
  - Neutropenia [Unknown]
  - Off label use [Recovered/Resolved]
